FAERS Safety Report 5289727-X (Version None)
Quarter: 2007Q2

REPORT INFORMATION
  Report Type: 
  Country: None (occurrence: None)
  Receive Date: 20070406
  Receipt Date: 20070322
  Transmission Date: 20071010
  Serious: Yes (Death)
  Sender: FDA-Public Use
  Company Number: JP-SANOFI-SYNTHELABO-A01200609530

PATIENT
  Sex: Male

DRUGS (5)
  1. OLIVES/LIDOCAINE [Concomitant]
     Indication: DRUG USE FOR UNKNOWN INDICATION
     Dosage: UNK
     Route: 042
  2. MILRILA [Suspect]
     Indication: LOW CARDIAC OUTPUT SYNDROME
     Dosage: 3 ML/HR INCREASED TO 5 ML/HR
     Route: 041
     Dates: start: 20061102, end: 20061102
  3. SIGMART [Concomitant]
     Indication: DRUG USE FOR UNKNOWN INDICATION
     Dosage: UNK
     Route: 042
     Dates: start: 20061102, end: 20061102
  4. NITROGLYCERIN [Concomitant]
     Indication: DRUG USE FOR UNKNOWN INDICATION
     Dosage: UNK
     Route: 042
     Dates: start: 20061102, end: 20061102
  5. KAKODIN, DOPAMINE HYDROCHLORIDE [Concomitant]
     Indication: DRUG USE FOR UNKNOWN INDICATION
     Dosage: UNK
     Route: 042

REACTIONS (1)
  - VENTRICULAR FIBRILLATION [None]
